FAERS Safety Report 12092585 (Version 1)
Quarter: 2016Q1

REPORT INFORMATION
  Report Type: Other
  Country: GB (occurrence: GB)
  Receive Date: 20160219
  Receipt Date: 20160219
  Transmission Date: 20160526
  Serious: Yes (Hospitalization)
  Sender: FDA-Public Use
  Company Number: GB-LUPIN PHARMACEUTICALS INC.-E2B_00004869

PATIENT
  Age: 29 Year
  Sex: Female

DRUGS (1)
  1. CEFALEXIN [Suspect]
     Active Substance: CEPHALEXIN
     Indication: URINARY TRACT INFECTION
     Route: 065

REACTIONS (6)
  - Pyrexia [Unknown]
  - Hypersensitivity vasculitis [Unknown]
  - Pruritus [Unknown]
  - Exposure during pregnancy [Unknown]
  - Rash [Unknown]
  - Chills [Unknown]
